FAERS Safety Report 7491704-5 (Version None)
Quarter: 2011Q2

REPORT INFORMATION
  Report Type: 
  Country: None (occurrence: None)
  Receive Date: 20110519
  Receipt Date: 20110510
  Transmission Date: 20111010
  Serious: Yes (Hospitalization)
  Sender: FDA-Public Use
  Company Number: AU-ASTRAZENECA-2011SE28293

PATIENT
  Age: 10 Year
  Sex: Male

DRUGS (5)
  1. SYMBICORT [Suspect]
     Dosage: 200MCG TWO TO FOUR PUFFS TWICE A DAY
     Route: 055
     Dates: start: 20090101
  2. SINGULAIR [Concomitant]
  3. PREDNISOLONE [Concomitant]
     Dosage: 12 MG 3 TO 4/7 AS REQUIRED
  4. PREDNISOLONE [Concomitant]
     Dosage: 12 MG EXCEEDED BY 30 MG
  5. VENTOLIN [Concomitant]
     Dosage: 10 PUFFS AS REQUIRED

REACTIONS (3)
  - ASTHMA [None]
  - DRUG PRESCRIBING ERROR [None]
  - DRUG INEFFECTIVE [None]
